FAERS Safety Report 21895332 (Version 1)
Quarter: 2023Q1

REPORT INFORMATION
  Report Type: Spontaneous
  Country: US (occurrence: US)
  Receive Date: 20230123
  Receipt Date: 20230123
  Transmission Date: 20230418
  Serious: No
  Sender: FDA-Public Use
  Company Number: US-SA-SAC20230118001341

PATIENT
  Age: 39 Year
  Sex: Male

DRUGS (2)
  1. ELOCTATE [Suspect]
     Active Substance: EFMOROCTOCOG ALFA
     Indication: Factor VIII deficiency
     Dosage: 4700 UNITS (4230-5170) , BIW , PRN
     Route: 042
     Dates: start: 202209
  2. ELOCTATE [Suspect]
     Active Substance: EFMOROCTOCOG ALFA
     Indication: Factor VIII deficiency
     Dosage: 4700 UNITS (4230-5170) , BIW , PRN
     Route: 042
     Dates: start: 202209

REACTIONS (1)
  - Wound [Unknown]

NARRATIVE: CASE EVENT DATE: 20220101
